FAERS Safety Report 5140706-2 (Version None)
Quarter: 2006Q4

REPORT INFORMATION
  Report Type: 
  Country: None (occurrence: None)
  Receive Date: 20061025
  Receipt Date: 20061016
  Transmission Date: 20070319
  Serious: Yes (Disabling, Other)
  Sender: FDA-Public Use
  Company Number: 2006127584

PATIENT
  Sex: Male

DRUGS (1)
  1. FELDENE [Suspect]
     Indication: SCAR
     Dosage: TOPICAL
     Route: 061
     Dates: start: 20061001, end: 20061013

REACTIONS (2)
  - ABASIA [None]
  - OEDEMA GENITAL [None]
